FAERS Safety Report 4661542-7 (Version None)
Quarter: 2005Q2

REPORT INFORMATION
  Report Type: 
  Country: None (occurrence: None)
  Receive Date: 20050502
  Receipt Date: 20050106
  Transmission Date: 20051028
  Serious: No
  Sender: FDA-Public Use
  Company Number: 200510149US

PATIENT

DRUGS (1)
  1. KETEK [Suspect]

REACTIONS (5)
  - DIARRHOEA [None]
  - DISORIENTATION [None]
  - FEELING ABNORMAL [None]
  - NAUSEA [None]
  - VOMITING [None]
